FAERS Safety Report 5974854-1 (Version None)
Quarter: 2008Q4

REPORT INFORMATION
  Report Type: 
  Country: None (occurrence: None)
  Receive Date: 20081202
  Receipt Date: 20081128
  Transmission Date: 20090506
  Serious: Yes (Other)
  Sender: FDA-Public Use
  Company Number: PL-PFIZER INC-2008101052

PATIENT
  Sex: Female

DRUGS (4)
  1. SU-011,248 [Suspect]
     Indication: BREAST CANCER
     Route: 048
     Dates: start: 20080923
  2. CAPECITABINE [Suspect]
     Indication: BREAST CANCER
     Dosage: DAILY DOSE:1650MG-FREQ:DAY 1-14, EVERY 3 WEEKS
     Route: 048
     Dates: start: 20080923
  3. OMEPRAZOLE [Concomitant]
     Indication: PROPHYLAXIS AGAINST GASTROINTESTINAL ULCER
     Dosage: DAILY DOSE:10MG
     Dates: start: 20080923
  4. SULFASALAZINE [Concomitant]
     Indication: PROPHYLAXIS
     Dates: start: 20080923

REACTIONS (1)
  - VENTRICULAR EXTRASYSTOLES [None]
